FAERS Safety Report 12082424 (Version 1)
Quarter: 2016Q1

REPORT INFORMATION
  Report Type: Report from Study
  Country: US (occurrence: US)
  Receive Date: 20160217
  Receipt Date: 20160217
  Transmission Date: 20160526
  Serious: No
  Sender: FDA-Public Use
  Company Number: US-AMGEN-USASL2016017293

PATIENT
  Age: 66 Year
  Sex: Female

DRUGS (1)
  1. ENBREL [Suspect]
     Active Substance: ETANERCEPT
     Indication: RHEUMATOID ARTHRITIS
     Dosage: 50 MG, QWK
     Route: 065
     Dates: start: 201511

REACTIONS (6)
  - Musculoskeletal disorder [Not Recovered/Not Resolved]
  - General symptom [Unknown]
  - Injection site pain [Unknown]
  - Joint range of motion decreased [Unknown]
  - Weight increased [Unknown]
  - Pain [Not Recovered/Not Resolved]
